FAERS Safety Report 10190031 (Version 1)
Quarter: 2014Q2

REPORT INFORMATION
  Report Type: Spontaneous
  Country: US (occurrence: None)
  Receive Date: 20140521
  Receipt Date: 20140521
  Transmission Date: 20141212
  Serious: No
  Sender: FDA-Public Use
  Company Number: None

PATIENT
  Age: 47 Year
  Sex: Female
  Weight: 81.19 kg

DRUGS (1)
  1. VALACYCLOVIR [Suspect]
     Indication: GENITAL HERPES SIMPLEX
     Route: 048

REACTIONS (7)
  - Abdominal pain [None]
  - Discomfort [None]
  - Nausea [None]
  - Drug effect decreased [None]
  - Herpes virus infection [None]
  - Condition aggravated [None]
  - Product substitution issue [None]
